FAERS Safety Report 9665301 (Version 3)
Quarter: 2014Q1

REPORT INFORMATION
  Report Type: Spontaneous
  Country: MX (occurrence: MX)
  Receive Date: 20131101
  Receipt Date: 20140217
  Transmission Date: 20141002
  Serious: Yes (Other)
  Sender: FDA-Public Use
  Company Number: PHHY2013MX080000

PATIENT
  Age: 23 Year
  Sex: Female
  Weight: 78 kg

DRUGS (4)
  1. TEGRETOL-XR [Suspect]
     Indication: EPILEPSY
     Dosage: 3 DF DAILY
     Route: 048
     Dates: start: 201112, end: 201212
  2. TEGRETOL [Suspect]
     Indication: EPILEPSY
     Dosage: 3 DF DAILY
     Route: 048
     Dates: start: 201212
  3. TEGRETOL [Suspect]
     Dosage: 0.5 DF DAILY
     Route: 048
  4. MVI [Concomitant]
     Dosage: UNK UKN, UNK

REACTIONS (8)
  - Placenta praevia [Unknown]
  - Uterine infection [Unknown]
  - Uterine contractions during pregnancy [Unknown]
  - Pain [Unknown]
  - Renal disorder [Unknown]
  - Convulsion [Unknown]
  - Suppressed lactation [Unknown]
  - Maternal exposure during pregnancy [Unknown]
